FAERS Safety Report 10260364 (Version 1)
Quarter: 2014Q2

REPORT INFORMATION
  Report Type: Spontaneous
  Country: US (occurrence: US)
  Receive Date: 20140625
  Receipt Date: 20140625
  Transmission Date: 20141212
  Serious: No
  Sender: FDA-Public Use
  Company Number: US-SA-2014SA077461

PATIENT
  Age: 49 Year
  Sex: Female

DRUGS (2)
  1. AUBAGIO [Suspect]
     Indication: PRODUCT USED FOR UNKNOWN INDICATION
     Route: 065
     Dates: start: 201312, end: 201403
  2. AUBAGIO [Suspect]
     Indication: PRODUCT USED FOR UNKNOWN INDICATION
     Route: 065
     Dates: start: 201404

REACTIONS (2)
  - Dry skin [Not Recovered/Not Resolved]
  - Dermatitis [Not Recovered/Not Resolved]
